FAERS Safety Report 17301032 (Version 1)
Quarter: 2020Q1

REPORT INFORMATION
  Report Type: Report from Study
  Country: BE (occurrence: BE)
  Receive Date: 20200122
  Receipt Date: 20200122
  Transmission Date: 20200409
  Serious: Yes (Congenital Anomaly, Other)
  Sender: FDA-Public Use
  Company Number: BE-JNJFOC-20200130214

PATIENT

DRUGS (2)
  1. INFLIXIMAB, RECOMBINANT [Suspect]
     Active Substance: INFLIXIMAB
     Route: 063
  2. INFLIXIMAB, RECOMBINANT [Suspect]
     Active Substance: INFLIXIMAB
     Indication: INFLAMMATORY BOWEL DISEASE
     Route: 064

REACTIONS (14)
  - Trisomy 21 [Unknown]
  - Foetal exposure during pregnancy [Unknown]
  - Infection [Unknown]
  - Polydactyly [Unknown]
  - Urinary tract infection [Unknown]
  - Hypospadias [Unknown]
  - Syndactyly [Unknown]
  - Pyrexia [Unknown]
  - Premature baby [Unknown]
  - Developmental delay [Unknown]
  - Small for dates baby [Unknown]
  - Respiratory tract infection [Unknown]
  - Otitis media acute [Unknown]
  - Exposure via breast milk [Unknown]
